FAERS Safety Report 20454421 (Version 1)
Quarter: 2022Q1

REPORT INFORMATION
  Report Type: Spontaneous
  Country: US (occurrence: None)
  Receive Date: 20220209
  Receipt Date: 20220209
  Transmission Date: 20220423
  Serious: Yes (unspecified)
  Sender: FDA-Public Use
  Company Number: None

PATIENT
  Age: 71 Year
  Sex: Female
  Weight: 60 kg

DRUGS (4)
  1. DOXORUBICIN HYDROCHLORIDE [Suspect]
     Active Substance: DOXORUBICIN HYDROCHLORIDE
     Indication: Ovarian cancer
     Dosage: OTHER FREQUENCY : ONE TIME INFUSION;?
     Route: 041
     Dates: start: 20220131, end: 20220131
  2. Hydrocortisone 100 mg IVP [Concomitant]
     Dates: start: 20220131, end: 20220131
  3. Diphenhydramine 25 mg IVP [Concomitant]
     Dates: start: 20220131, end: 20220131
  4. Famotidine 40 mg IVP [Concomitant]
     Dates: start: 20220131, end: 20220131

REACTIONS (6)
  - Pruritus [None]
  - Back pain [None]
  - Abdominal pain [None]
  - Infusion related reaction [None]
  - Emotional disorder [None]
  - Therapy cessation [None]

NARRATIVE: CASE EVENT DATE: 20220131
